FAERS Safety Report 12355877 (Version 2)
Quarter: 2017Q2

REPORT INFORMATION
  Report Type: Spontaneous
  Country: US (occurrence: US)
  Receive Date: 20160511
  Receipt Date: 20170421
  Transmission Date: 20170830
  Serious: Yes (Hospitalization)
  Sender: FDA-Public Use
  Company Number: US-B.I. PHARMACEUTICALS,INC./RIDGEFIELD-2016-BI-29374BI

PATIENT
  Sex: Male

DRUGS (7)
  1. PROPRANOLOL [Concomitant]
     Active Substance: PROPRANOLOL HYDROCHLORIDE
     Indication: HYPERTENSION
     Route: 065
  2. COLACE [Concomitant]
     Active Substance: DOCUSATE SODIUM
     Indication: CONSTIPATION
     Route: 065
  3. SENNA [Concomitant]
     Active Substance: SENNA LEAF\SENNOSIDES\SENNOSIDES A AND B
     Indication: CONSTIPATION
     Route: 065
  4. PRADAXA [Suspect]
     Active Substance: DABIGATRAN ETEXILATE MESYLATE
     Indication: ATRIAL FIBRILLATION
     Route: 048
  5. LASIX [Concomitant]
     Active Substance: FUROSEMIDE
     Indication: HYPERTENSION
     Route: 065
  6. SIMVASTATIN. [Concomitant]
     Active Substance: SIMVASTATIN
     Indication: HYPERLIPIDAEMIA
     Route: 065
  7. MIRALAX [Concomitant]
     Active Substance: POLYETHYLENE GLYCOL 3350
     Indication: CONSTIPATION
     Route: 065

REACTIONS (1)
  - Upper gastrointestinal haemorrhage [Recovered/Resolved]
